FAERS Safety Report 8661209 (Version 6)
Quarter: 2013Q4

REPORT INFORMATION
  Report Type: Report from Study
  Country: US (occurrence: US)
  Receive Date: 20120712
  Receipt Date: 20131025
  Transmission Date: 20140711
  Serious: Yes (Hospitalization)
  Sender: FDA-Public Use
  Company Number: US-BRISTOL-MYERS SQUIBB COMPANY-16703167

PATIENT
  Age: 41 Year
  Sex: Female

DRUGS (1)
  1. ARIPIPRAZOLE IM DEPOT [Suspect]
     Indication: SCHIZOPHRENIA
     Route: 030
     Dates: start: 20120314, end: 20120502

REACTIONS (1)
  - Schizophrenia [Recovered/Resolved]
